FAERS Safety Report 4549123-7 (Version None)
Quarter: 2004Q4

REPORT INFORMATION
  Report Type: 
  Country: None (occurrence: None)
  Receive Date: 20041227
  Receipt Date: 20040917
  Transmission Date: 20050328
  Serious: No
  Sender: FDA-Public Use
  Company Number: 04P-163-0273879-00

PATIENT
  Age: 82 Year
  Sex: Female
  Weight: 58.0604 kg

DRUGS (16)
  1. HUMIRA [Suspect]
     Indication: RHEUMATOID ARTHRITIS
     Dosage: 1 IN 2 WK, SUBCUTANEOUS
     Route: 058
     Dates: start: 20040101
  2. METHOTREXATE [Concomitant]
  3. MULTI-VITAMINS [Concomitant]
  4. PERITAN C [Concomitant]
  5. CORAL CALCIUM [Concomitant]
  6. SOFT GELS [Concomitant]
  7. ACETAMINOPHEN [Concomitant]
  8. PANTOPRAZOLE [Concomitant]
  9. GLUCOSAMINE [Concomitant]
  10. ATENOLOL [Concomitant]
  11. VALSARTAN [Concomitant]
  12. LOVASTATIN [Concomitant]
  13. CLONAZEPAM [Concomitant]
  14. RALOXIFENE HCL [Concomitant]
  15. FUROSEMIDE [Concomitant]
  16. FOLIC ACID [Concomitant]

REACTIONS (1)
  - INJECTION SITE ERYTHEMA [None]
